FAERS Safety Report 16365079 (Version 2)
Quarter: 2019Q2

REPORT INFORMATION
  Report Type: Report from Study
  Country: None (occurrence: ES)
  Receive Date: 20190529
  Receipt Date: 20190531
  Transmission Date: 20190711
  Serious: Yes (Hospitalization)
  Sender: FDA-Public Use
  Company Number: ES-ABBVIE-19S-144-2798944-00

PATIENT
  Age: 77 Year
  Sex: Male

DRUGS (1)
  1. DUODOPA [Suspect]
     Active Substance: CARBIDOPA\LEVODOPA
     Indication: PARKINSON^S DISEASE
     Route: 050
     Dates: start: 20120419

REACTIONS (4)
  - Stoma site oedema [Not Recovered/Not Resolved]
  - Bronchitis [Recovering/Resolving]
  - Medical device site warmth [Not Recovered/Not Resolved]
  - Abdominal mass [Recovered/Resolved]

NARRATIVE: CASE EVENT DATE: 20190521
